FAERS Safety Report 8116540-8 (Version None)
Quarter: 2012Q1

REPORT INFORMATION
  Report Type: 
  Country: None (occurrence: None)
  Receive Date: 20120206
  Receipt Date: 20120131
  Transmission Date: 20120608
  Serious: Yes (Other)
  Sender: FDA-Public Use
  Company Number: US-TEVA-320430USA

PATIENT
  Age: 10 Month

DRUGS (2)
  1. LEVALBUTEROL HYDROCHLORIDE [Suspect]
     Indication: ASTHMA
     Route: 055
  2. BUDESONIDE [Suspect]
     Indication: PRODUCT USED FOR UNKNOWN INDICATION

REACTIONS (2)
  - TREMOR [None]
  - CONVULSION [None]
